FAERS Safety Report 21049106 (Version 1)
Quarter: 2022Q3

REPORT INFORMATION
  Report Type: Spontaneous
  Country: GB (occurrence: GB)
  Receive Date: 20220706
  Receipt Date: 20220706
  Transmission Date: 20221026
  Serious: Yes (Hospitalization, Other)
  Sender: FDA-Public Use
  Company Number: None

PATIENT
  Age: 94 Year
  Sex: Female

DRUGS (11)
  1. MIRTAZAPINE [Suspect]
     Active Substance: MIRTAZAPINE
     Indication: Depression
     Dosage: 15 MILLIGRAM, HS(15MG ON)
     Route: 065
     Dates: start: 20220203, end: 20220219
  2. AMLODIPINE [Concomitant]
     Active Substance: AMLODIPINE BESYLATE
     Dosage: 1 DOSAGE FORM, AM(1 OM)
     Route: 065
  3. CLOPIDOGREL [Concomitant]
     Active Substance: CLOPIDOGREL BISULFATE
     Dosage: 1 DOSAGE FORM, AM(1 OM)
     Route: 065
  4. DOCUSATE [Concomitant]
     Active Substance: DOCUSATE
     Dosage: 1 DOSAGE FORM, PRN(1 BD PRN)
     Route: 065
  5. HYDROXOCOBALAMIN [Concomitant]
     Active Substance: HYDROXOCOBALAMIN
     Dosage: 1 MILLILITER, 3XMONTHS(1MG/1ML SOLUTION FOR INJECTION AMPOULES 1ML INJECTION EVERY 3 MONTHS)
     Route: 065
  6. LINAGLIPTIN [Concomitant]
     Active Substance: LINAGLIPTIN
     Dosage: 1 DOSAGE FORM, AM(1 OM)
     Route: 065
  7. LORAZEPAM [Concomitant]
     Active Substance: LORAZEPAM
     Dosage: (1 QDS PRN N.B. NEW AND HAD NEVER USED)
     Route: 065
  8. SODIUM BICARBONATE [Concomitant]
     Active Substance: SODIUM BICARBONATE
     Dosage: 1 DOSAGE FORM, AM(1 OM, 2 ON)
     Route: 065
  9. SODIUM BICARBONATE [Concomitant]
     Active Substance: SODIUM BICARBONATE
     Dosage: 2 DOSAGE FORM, HS(1 OM, 2 ON)
     Route: 065
  10. BIMATOPROST;TIMOLOL MALEATE [Concomitant]
     Dosage: UNK, AM(1 DROP B/E OM)
     Route: 065
  11. Balneum plus [Concomitant]
     Dosage: UNK, PRN
     Route: 065

REACTIONS (4)
  - Paranoia [Recovered/Resolved]
  - Paraphilia [Recovered/Resolved]
  - Aggression [Recovered/Resolved]
  - Hallucination [Recovered/Resolved]
